FAERS Safety Report 20246324 (Version 1)
Quarter: 2021Q4

REPORT INFORMATION
  Report Type: Spontaneous
  Country: US (occurrence: US)
  Receive Date: 20211229
  Receipt Date: 20211229
  Transmission Date: 20220303
  Serious: No
  Sender: FDA-Public Use
  Company Number: US-PERRIGO-21US024395

PATIENT
  Sex: Female

DRUGS (2)
  1. GUAIFENESIN [Suspect]
     Active Substance: GUAIFENESIN
     Indication: Product used for unknown indication
     Dosage: 600 MG, SINGLE
     Route: 048
     Dates: start: 202109, end: 202109
  2. GUAIFENESIN [Suspect]
     Active Substance: GUAIFENESIN
     Dosage: 1/2 TABLET, SINGLE
     Route: 048
     Dates: start: 202109, end: 202109

REACTIONS (5)
  - Chills [Unknown]
  - Pyrexia [Unknown]
  - Hyperhidrosis [Unknown]
  - Wrong technique in product usage process [Recovered/Resolved]
  - Underdose [Recovered/Resolved]

NARRATIVE: CASE EVENT DATE: 20210901
